FAERS Safety Report 17661302 (Version 3)
Quarter: 2022Q2

REPORT INFORMATION
  Report Type: Spontaneous
  Country: NL (occurrence: NL)
  Receive Date: 20200413
  Receipt Date: 20220602
  Transmission Date: 20220721
  Serious: Yes (Other)
  Sender: FDA-Public Use
  Company Number: NL-MYLANLABS-2020M1035419

PATIENT
  Sex: Female

DRUGS (8)
  1. CARBASPIRIN CALCIUM [Suspect]
     Active Substance: CARBASPIRIN CALCIUM
     Indication: Product used for unknown indication
     Dosage: UNK
  2. SILDENAFIL [Suspect]
     Active Substance: SILDENAFIL
     Indication: Product used for unknown indication
     Dosage: UNK
     Dates: start: 2014
  3. ESOMEPRAZOLE [Suspect]
     Active Substance: ESOMEPRAZOLE
     Indication: Product used for unknown indication
     Dosage: 20 MILLIGRAM, BID
     Dates: start: 2014
  4. CARBASPIRIN CALCIUM [Suspect]
     Active Substance: CARBASPIRIN CALCIUM
     Indication: Product used for unknown indication
     Dosage: UNK
     Dates: start: 2005
  5. PANTOZOL [Suspect]
     Active Substance: PANTOPRAZOLE SODIUM
     Indication: Product used for unknown indication
     Dosage: 40 MILLIGRAM, BID
     Dates: start: 2008
  6. NEXIUM [Suspect]
     Active Substance: ESOMEPRAZOLE MAGNESIUM
     Indication: Product used for unknown indication
     Dosage: 40 MILLIGRAM, BID
     Dates: start: 2009
  7. LEVOCETIRIZINE DIHYDROCHLORIDE [Concomitant]
     Active Substance: LEVOCETIRIZINE DIHYDROCHLORIDE
     Indication: Seasonal allergy
     Dosage: UNK
  8. NIFEDIPINE [Concomitant]
     Active Substance: NIFEDIPINE

REACTIONS (27)
  - Gastrointestinal haemorrhage [Unknown]
  - Eructation [Unknown]
  - Nasal inflammation [Unknown]
  - Blood sodium decreased [Unknown]
  - Abdominal distension [Unknown]
  - Gastrointestinal disorder [Unknown]
  - Bezoar [Unknown]
  - Muscle spasms [Unknown]
  - Fluid retention [Unknown]
  - Gastrooesophageal reflux disease [Unknown]
  - Fatigue [Unknown]
  - Pain in extremity [Unknown]
  - Insomnia [Unknown]
  - Bleeding time prolonged [Unknown]
  - Nasal congestion [Unknown]
  - Oedema peripheral [Unknown]
  - Palpitations [Unknown]
  - Flatulence [Unknown]
  - Dry mouth [Unknown]
  - Paraesthesia [Unknown]
  - Myalgia [Unknown]
  - Dyspepsia [Unknown]
  - Anaemia [Unknown]
  - Skin infection [Unknown]
  - Restlessness [Unknown]
  - Constipation [Unknown]
  - Platelet count decreased [Unknown]
